FAERS Safety Report 10043385 (Version 1)
Quarter: 2014Q1

REPORT INFORMATION
  Report Type: Spontaneous
  Country: US (occurrence: US)
  Receive Date: 20140328
  Receipt Date: 20140328
  Transmission Date: 20141002
  Serious: Yes (Other)
  Sender: FDA-Public Use
  Company Number: US-PFIZER INC-2014085099

PATIENT
  Sex: 0

DRUGS (2)
  1. LYRICA [Suspect]
     Dosage: UNK
  2. ZOCOR [Suspect]
     Dosage: UNK

REACTIONS (2)
  - Rhabdomyolysis [Unknown]
  - Oedema [Unknown]
